FAERS Safety Report 5010264-1 (Version None)
Quarter: 2006Q2

REPORT INFORMATION
  Report Type: 
  Country: None (occurrence: None)
  Receive Date: 20060404
  Receipt Date: 20051201
  Transmission Date: 20061013
  Serious: Yes (Other)
  Sender: FDA-Public Use
  Company Number: US200511003357

PATIENT
  Age: 61 Year
  Sex: Female

DRUGS (18)
  1. CYMBALTA [Suspect]
     Indication: DIABETIC NEUROPATHY
     Dosage: 20 MG, 2/D
     Dates: start: 20041204
  2. ATENOLOL [Concomitant]
  3. AVAPRO [Concomitant]
  4. ECOTRIN (ACETYLSALICYLIC ACID) [Concomitant]
  5. FUROSEMIDE [Concomitant]
  6. IMDUR [Concomitant]
  7. LIPITOR [Concomitant]
  8. NITROQUICK (GLYCERYL TRINITRATE) [Concomitant]
  9. LIPITOR [Concomitant]
  10. NITROQUICK (GLYCERYL TRINITRATE) [Concomitant]
  11. PLAVIX [Concomitant]
  12. NORVASC /GRC/(AMLODIPINE) [Concomitant]
  13. POTASSIUM CHLORIDE [Concomitant]
  14. SYNTHROID [Concomitant]
  15. PROTONIX [Concomitant]
  16. ZETIA [Concomitant]
  17. HUMALOG [Concomitant]
  18. LANTUS [Concomitant]

REACTIONS (1)
  - CARDIAC FAILURE CONGESTIVE [None]
